FAERS Safety Report 26189370 (Version 1)
Quarter: 2025Q4

REPORT INFORMATION
  Report Type: Spontaneous
  Country: EU (occurrence: EU)
  Receive Date: 20251223
  Receipt Date: 20251223
  Transmission Date: 20260118
  Serious: Yes (Hospitalization)
  Sender: NOVARTIS
  Company Number: None

PATIENT
  Sex: Female
  Weight: 3.85 kg

DRUGS (4)
  1. TRILEPTAL [Suspect]
     Active Substance: OXCARBAZEPINE
     Indication: Epilepsy
     Dosage: 1200 MG, QD
     Route: 065
     Dates: start: 202503, end: 20251114
  2. CLOBAZAM [Suspect]
     Active Substance: CLOBAZAM
     Indication: Epilepsy
     Dosage: 20 MG, QD
     Route: 065
     Dates: end: 20251114
  3. KEPPRA [Suspect]
     Active Substance: LEVETIRACETAM
     Indication: Epilepsy
     Dosage: 3000 MG, QD
     Route: 065
     Dates: start: 20241218, end: 20251114
  4. HUMIRA [Concomitant]
     Active Substance: ADALIMUMAB
     Indication: Rasmussen encephalitis
     Dosage: 80 MG, QW
     Route: 065
     Dates: end: 20251114

REACTIONS (3)
  - Irritability [Recovered/Resolved]
  - Behaviour disorder [Recovered/Resolved]
  - Poor feeding infant [Recovered/Resolved]

NARRATIVE: CASE EVENT DATE: 20251114
